FAERS Safety Report 5860718-0 (Version None)
Quarter: 2008Q3

REPORT INFORMATION
  Report Type: 
  Country: None (occurrence: None)
  Receive Date: 20080826
  Receipt Date: 20080812
  Transmission Date: 20090109
  Serious: Yes (Other)
  Sender: FDA-Public Use
  Company Number: SPV1-2008-01622

PATIENT
  Age: 43 Year
  Sex: Female
  Weight: 72.6 kg

DRUGS (2)
  1. ADDERALL XR 30 [Suspect]
     Indication: ATTENTION DEFICIT/HYPERACTIVITY DISORDER
     Dosage: 30 MG, ORAL
     Route: 048
     Dates: start: 20050901, end: 20080703
  2. WELLBUTRIN [Concomitant]

REACTIONS (9)
  - AMENORRHOEA [None]
  - ANXIETY [None]
  - CONCUSSION [None]
  - DEPRESSION SUICIDAL [None]
  - DISTURBANCE IN ATTENTION [None]
  - FATIGUE [None]
  - OVERDOSE [None]
  - PANIC REACTION [None]
  - ROAD TRAFFIC ACCIDENT [None]
